FAERS Safety Report 6840307-1 (Version None)
Quarter: 2010Q3

REPORT INFORMATION
  Report Type: 
  Country: None (occurrence: None)
  Receive Date: 20100709
  Receipt Date: 20100630
  Transmission Date: 20110219
  Serious: Yes (Hospitalization)
  Sender: FDA-Public Use
  Company Number: USA/USA/10/0013929

PATIENT
  Age: 36 Year
  Sex: Female
  Weight: 68.9467 kg

DRUGS (13)
  1. SIMVASTATIN [Suspect]
     Indication: BLOOD CHOLESTEROL INCREASED
     Dosage: 40 MG, 1 IN 1 D, PER ORAL
     Route: 048
     Dates: end: 20100627
  2. TERAZOSIN HCL [Concomitant]
  3. METOPROLOL XL (METOPROLOL) [Concomitant]
  4. FUROSEMIDE [Concomitant]
  5. NIASPAN [Concomitant]
  6. ISOSORBIDE MONOHNITRATE (ISOSORBIDE MONONITRATE) [Concomitant]
  7. AMLODIPINE [Concomitant]
  8. MAGNESIUM (MAGNESIUM) [Concomitant]
  9. GLYBURIDE [Concomitant]
  10. JANUVIA [Concomitant]
  11. NEXIUM [Concomitant]
  12. FENOFIBRATE [Concomitant]
  13. ASPIRIN [Concomitant]

REACTIONS (6)
  - BLOOD GLUCOSE INCREASED [None]
  - COUGH [None]
  - RESPIRATORY DISORDER [None]
  - SINUS DISORDER [None]
  - SQUAMOUS CELL CARCINOMA OF SKIN [None]
  - STAPHYLOCOCCAL SEPSIS [None]
